FAERS Safety Report 6524262-X (Version None)
Quarter: 2009Q4

REPORT INFORMATION
  Report Type: 
  Country: None (occurrence: None)
  Receive Date: 20091230
  Receipt Date: 20091230
  Transmission Date: 20100525
  Serious: Yes (Hospitalization)
  Sender: FDA-Public Use
  Company Number: None

PATIENT
  Age: 62 Year
  Sex: Male
  Weight: 73 kg

DRUGS (6)
  1. AZITHROMYCIN [Suspect]
     Indication: PNEUMONIA
     Dosage: 500MG IV ONCE
     Route: 042
     Dates: start: 20091010
  2. POTASSIUM CHLORIDE [Concomitant]
  3. HEPARIN [Concomitant]
  4. MAGNESIUM SULFATE [Concomitant]
  5. INSULIN ASPART [Concomitant]
  6. OXYCODONE HCL EXTENDED-RELEASE [Concomitant]

REACTIONS (1)
  - DRUG HYPERSENSITIVITY [None]
